FAERS Safety Report 8142115-0 (Version None)
Quarter: 2012Q1

REPORT INFORMATION
  Report Type: 
  Country: None (occurrence: None)
  Receive Date: 20120103
  Receipt Date: 20110902
  Transmission Date: 20120608
  Serious: No
  Sender: FDA-Public Use
  Company Number: AE-2011-001303

PATIENT
  Age: 61 Year
  Weight: 106.5953 kg

DRUGS (5)
  1. INCIVEK [Suspect]
     Dosage: 2250 MG (750 MG,1 IN 8 HR),ORAL
     Route: 048
     Dates: start: 20110829
  2. PEGASYS [Concomitant]
  3. RIBAVIRIN [Concomitant]
  4. LISINOPRIL [Concomitant]
  5. BUPROPION HCL [Concomitant]

REACTIONS (1)
  - PROCTALGIA [None]
